FAERS Safety Report 8991740 (Version 2)
Quarter: 2013Q1

REPORT INFORMATION
  Report Type: Spontaneous
  Country: US (occurrence: US)
  Receive Date: 20121231
  Receipt Date: 20130123
  Transmission Date: 20140127
  Serious: No
  Sender: FDA-Public Use
  Company Number: US-BIOGENIDEC-2012BI063600

PATIENT
  Age: 63 Year
  Sex: 0

DRUGS (2)
  1. AVONEX [Suspect]
     Indication: MULTIPLE SCLEROSIS
     Route: 030
     Dates: start: 20121114
  2. AVONEX [Suspect]
     Indication: MULTIPLE SCLEROSIS
     Route: 030
     Dates: start: 20121218

REACTIONS (8)
  - Trigeminal neuralgia [Not Recovered/Not Resolved]
  - Gait disturbance [Not Recovered/Not Resolved]
  - Drug dose omission [Recovered/Resolved]
  - Abasia [Recovered/Resolved]
  - Nasopharyngitis [Recovered/Resolved]
  - Memory impairment [Recovered/Resolved]
  - Headache [Not Recovered/Not Resolved]
  - Emotional distress [Not Recovered/Not Resolved]
